FAERS Safety Report 6832358-8 (Version None)
Quarter: 2010Q3

REPORT INFORMATION
  Report Type: 
  Country: None (occurrence: None)
  Receive Date: 20100712
  Receipt Date: 20100629
  Transmission Date: 20110219
  Serious: Yes (Life-Threatening, Hospitalization)
  Sender: FDA-Public Use
  Company Number: NZ-JNJFOC-20100702679

PATIENT
  Age: 3 Year
  Sex: Male

DRUGS (2)
  1. ACETAMINOPHEN [Suspect]
     Indication: EAR INFECTION
     Dosage: GIVEN LESS THAN HALF THE FOUR DOSES A DAY
  2. ANTIBIOTIC [Suspect]
     Indication: EAR INFECTION

REACTIONS (1)
  - HEPATIC FAILURE [None]
